FAERS Safety Report 21916959 (Version 2)
Quarter: 2023Q1

REPORT INFORMATION
  Report Type: Spontaneous
  Country: FR (occurrence: FR)
  Receive Date: 20230126
  Receipt Date: 20230131
  Transmission Date: 20230418
  Serious: Yes (Death, Hospitalization, Other)
  Sender: FDA-Public Use
  Company Number: FR-PFIZER INC-03P-056-0238627-00

PATIENT
  Age: 51 Year
  Sex: Male

DRUGS (1)
  1. ISOPTIN SR [Suspect]
     Active Substance: VERAPAMIL HYDROCHLORIDE
     Indication: Hypertensive cardiomyopathy
     Dosage: 30 TABLETS AT ONCE

REACTIONS (7)
  - Overdose [Fatal]
  - Multiple organ dysfunction syndrome [Fatal]
  - Altered state of consciousness [Unknown]
  - Hypotension [Not Recovered/Not Resolved]
  - Bradycardia [Not Recovered/Not Resolved]
  - Atrioventricular block [Not Recovered/Not Resolved]
  - Metabolic acidosis [Not Recovered/Not Resolved]
